FAERS Safety Report 15123996 (Version 1)
Quarter: 2018Q3

REPORT INFORMATION
  Report Type: Spontaneous
  Country: ES (occurrence: ES)
  Receive Date: 20180710
  Receipt Date: 20180710
  Transmission Date: 20181010
  Serious: Yes (Other)
  Sender: FDA-Public Use
  Company Number: ES-TEVA-2018-ES-923011

PATIENT
  Age: 21 Year
  Sex: Female

DRUGS (2)
  1. SUMATRIPT?N [Suspect]
     Active Substance: SUMATRIPTAN
     Indication: MIGRAINE
     Dosage: 50 MILLIGRAM DAILY;
     Route: 065
     Dates: start: 20180601, end: 20180604
  2. FERBISOL [Concomitant]
     Route: 065

REACTIONS (2)
  - Angioedema [Recovered/Resolved]
  - Palatal oedema [Recovered/Resolved]

NARRATIVE: CASE EVENT DATE: 20180601
